FAERS Safety Report 23789584 (Version 1)
Quarter: 2024Q2

REPORT INFORMATION
  Report Type: Spontaneous
  Country: US (occurrence: US)
  Receive Date: 20240426
  Receipt Date: 20240426
  Transmission Date: 20240716
  Serious: No
  Sender: FDA-Public Use
  Company Number: US-SEATTLE GENETICS-2023SGN04990

PATIENT
  Sex: Female

DRUGS (2)
  1. TUKYSA [Suspect]
     Active Substance: TUCATINIB
     Indication: Breast cancer metastatic
     Dosage: 150 MG, BID
     Route: 065
  2. CAPECITABINE [Suspect]
     Active Substance: CAPECITABINE
     Indication: Breast cancer metastatic
     Dosage: 500 MG/KG, BID 2WK ON 1WK OFF
     Route: 065

REACTIONS (1)
  - Rash [Unknown]
